FAERS Safety Report 8176194-1 (Version None)
Quarter: 2012Q1

REPORT INFORMATION
  Report Type: 
  Country: None (occurrence: None)
  Receive Date: 20120301
  Receipt Date: 20120221
  Transmission Date: 20120608
  Serious: Yes (Hospitalization)
  Sender: FDA-Public Use
  Company Number: CA-JNJFOC-20120211069

PATIENT
  Sex: Male
  Weight: 156 kg

DRUGS (2)
  1. REMICADE [Suspect]
     Indication: CROHN'S DISEASE
     Dosage: 8/52
     Route: 042
     Dates: start: 20070101
  2. METHOTREXATE [Concomitant]
     Route: 048

REACTIONS (5)
  - PYREXIA [None]
  - PHOTOPHOBIA [None]
  - DYSPNOEA [None]
  - HEADACHE [None]
  - VISION BLURRED [None]
